FAERS Safety Report 6225196-0 (Version None)
Quarter: 2009Q2

REPORT INFORMATION
  Report Type: 
  Country: None (occurrence: None)
  Receive Date: 20090612
  Receipt Date: 20090413
  Transmission Date: 20091009
  Serious: No
  Sender: FDA-Public Use
  Company Number: US-ABBOTT-09P-163-0567804-00

PATIENT
  Sex: Female
  Weight: 136.2 kg

DRUGS (17)
  1. HUMIRA [Suspect]
     Indication: RHEUMATOID ARTHRITIS
     Route: 058
     Dates: start: 20080101, end: 20080101
  2. HUMIRA [Suspect]
     Indication: PSORIATIC ARTHROPATHY
     Route: 058
     Dates: start: 20080101
  3. HUMIRA [Suspect]
     Indication: OSTEOARTHRITIS
  4. ARTHROTEC [Concomitant]
     Indication: DRUG USE FOR UNKNOWN INDICATION
  5. INSULIN [Concomitant]
     Indication: DRUG USE FOR UNKNOWN INDICATION
  6. LIPITOR [Concomitant]
     Indication: DRUG USE FOR UNKNOWN INDICATION
  7. LYRICA [Concomitant]
     Indication: DRUG USE FOR UNKNOWN INDICATION
  8. SYNTHROID [Concomitant]
     Indication: DRUG USE FOR UNKNOWN INDICATION
  9. PREVACID [Concomitant]
     Indication: DRUG USE FOR UNKNOWN INDICATION
  10. LASIX [Concomitant]
     Indication: DRUG USE FOR UNKNOWN INDICATION
  11. ELAVIL [Concomitant]
     Indication: DRUG USE FOR UNKNOWN INDICATION
  12. SINGULAIR [Concomitant]
     Indication: DRUG USE FOR UNKNOWN INDICATION
  13. TRICOR [Concomitant]
     Indication: DRUG USE FOR UNKNOWN INDICATION
  14. VICODIN [Concomitant]
     Indication: DRUG USE FOR UNKNOWN INDICATION
  15. ZANAFLEX [Concomitant]
     Indication: DRUG USE FOR UNKNOWN INDICATION
  16. REGLAN [Concomitant]
     Indication: DRUG USE FOR UNKNOWN INDICATION
  17. NIASPAN [Concomitant]
     Indication: DRUG USE FOR UNKNOWN INDICATION

REACTIONS (3)
  - ARTHRALGIA [None]
  - ARTHRITIS [None]
  - INJECTION SITE NODULE [None]
